FAERS Safety Report 17113947 (Version 1)
Quarter: 2019Q4

REPORT INFORMATION
  Report Type: Spontaneous
  Country: SE (occurrence: SE)
  Receive Date: 20191205
  Receipt Date: 20191205
  Transmission Date: 20200122
  Serious: Yes (Hospitalization)
  Sender: FDA-Public Use
  Company Number: SE-TEVA-2019-SE-1146914

PATIENT
  Age: 22 Year
  Sex: Female

DRUGS (3)
  1. PANTOPRAZOLE [Suspect]
     Active Substance: PANTOPRAZOLE
     Dosage: 5-6 PIECES
     Route: 048
     Dates: start: 20180731, end: 20180731
  2. OXASCAND [Suspect]
     Active Substance: OXAZEPAM
     Dosage: A MAP 5 MG
     Route: 048
     Dates: start: 20180731, end: 20180731
  3. LERGIGAN (PROMETHAZINE HYDROCHLORIDE) [Suspect]
     Active Substance: PROMETHAZINE HYDROCHLORIDE
     Dosage: 25 MG 10 PIECES
     Route: 048
     Dates: start: 20180731, end: 20180731

REACTIONS (3)
  - Fatigue [Unknown]
  - Intentional overdose [Unknown]
  - Intentional self-injury [Unknown]

NARRATIVE: CASE EVENT DATE: 20180731
